FAERS Safety Report 7631921-4 (Version None)
Quarter: 2011Q3

REPORT INFORMATION
  Report Type: 
  Country: None (occurrence: None)
  Receive Date: 20110725
  Receipt Date: 20110511
  Transmission Date: 20111222
  Serious: No
  Sender: FDA-Public Use
  Company Number: US-BRISTOL-MYERS SQUIBB COMPANY-15736903

PATIENT
  Age: 53 Year
  Sex: Female

DRUGS (10)
  1. MAG-OX [Concomitant]
  2. COUMADIN [Suspect]
     Indication: ANTIPHOSPHOLIPID SYNDROME
  3. CIPROFLOXACIN HCL [Concomitant]
  4. PLAQUENIL [Concomitant]
  5. PRISTIQ [Concomitant]
  6. FOLIC ACID [Concomitant]
  7. SYNTHROID [Concomitant]
  8. POTASSIUM CHLORIDE [Concomitant]
  9. DEMADEX [Concomitant]
  10. ALDACTONE [Concomitant]

REACTIONS (2)
  - INTERNATIONAL NORMALISED RATIO DECREASED [None]
  - HERPES ZOSTER [None]
